FAERS Safety Report 7975351-4 (Version None)
Quarter: 2011Q4

REPORT INFORMATION
  Report Type: 
  Country: None (occurrence: None)
  Receive Date: 20111213
  Receipt Date: 20110926
  Transmission Date: 20120403
  Serious: No
  Sender: FDA-Public Use
  Company Number: US-AMGEN-USASP2011049815

PATIENT
  Age: 41 Year
  Sex: Male

DRUGS (3)
  1. ENBREL [Suspect]
     Indication: PRODUCT USED FOR UNKNOWN INDICATION
     Dosage: UNK
  2. HUMIRA [Concomitant]
     Indication: PSORIATIC ARTHROPATHY
  3. HUMIRA [Concomitant]
     Indication: PSORIASIS
     Dosage: 140 MG, Q2WK
     Dates: start: 20070101

REACTIONS (1)
  - INCREASED TENDENCY TO BRUISE [None]
